FAERS Safety Report 5772669-0 (Version None)
Quarter: 2008Q2

REPORT INFORMATION
  Report Type: 
  Country: None (occurrence: None)
  Receive Date: 20080613
  Receipt Date: 20080604
  Transmission Date: 20081010
  Serious: Yes (Hospitalization)
  Sender: FDA-Public Use
  Company Number: CA-BOEHRINGER INGELHEIM GMBH, GERMANY-2008-CN-00245CN

PATIENT
  Sex: Male

DRUGS (18)
  1. AGGRENOX [Suspect]
     Route: 048
     Dates: start: 20051104, end: 20051202
  2. DULCOLAX [Suspect]
  3. COLACE [Concomitant]
  4. METOPROLOL [Concomitant]
  5. IMOVANE [Concomitant]
  6. HEPARIN [Concomitant]
  7. NORVASC [Concomitant]
  8. CRESTOR [Concomitant]
  9. SEREVENT [Concomitant]
  10. TYLENOL [Concomitant]
  11. FLONASE [Concomitant]
  12. SENOKOT [Concomitant]
  13. MOTRIN [Concomitant]
  14. FLOVENT [Concomitant]
  15. BONAMINE [Concomitant]
  16. LOSEC I.V. [Concomitant]
  17. SODIUM PHOSPHATES [Concomitant]
  18. LACTULOSE [Concomitant]

REACTIONS (1)
  - RENAL FAILURE ACUTE [None]
